FAERS Safety Report 18224160 (Version 2)
Quarter: 2020Q3

REPORT INFORMATION
  Report Type: Spontaneous
  Country: FR (occurrence: FR)
  Receive Date: 20200902
  Receipt Date: 20200908
  Transmission Date: 20201103
  Serious: Yes (Other)
  Sender: FDA-Public Use
  Company Number: FR-PFIZER INC-2020339225

PATIENT
  Age: 82 Year
  Sex: Male
  Weight: 76 kg

DRUGS (11)
  1. MAG 2 [MAGNESIUM PIDOLATE] [Concomitant]
     Active Substance: MAGNESIUM PIDOLATE
     Dosage: UNK, 1X/DAY
     Route: 048
     Dates: start: 20200711
  2. MOVICOL [Concomitant]
     Active Substance: POLYETHYLENE GLYCOL 3350\POTASSIUM CHLORIDE\SODIUM BICARBONATE\SODIUM CHLORIDE
     Dosage: UNK, 1X/DAY
     Route: 048
     Dates: start: 20200712
  3. CEFTRIAXONE [CEFTRIAXONE SODIUM] [Suspect]
     Active Substance: CEFTRIAXONE SODIUM
     Indication: SEPTIC SHOCK
     Dosage: 2 G, 1X/DAY
     Route: 042
     Dates: start: 20200704, end: 20200720
  4. LOVENOX [Concomitant]
     Active Substance: ENOXAPARIN SODIUM
     Dosage: 4000 IU, 1X/DAY
     Route: 058
     Dates: start: 20190325
  5. TIBERAL [Concomitant]
     Active Substance: ORNIDAZOLE
     Dosage: 1 G, 1X/DAY
     Route: 042
     Dates: start: 20200714, end: 20200722
  6. PHOSPHONEUROS [Concomitant]
     Active Substance: CALCIUM PHOSPHATE, DIBASIC, ANHYDROUS\MAGNESIUM GLYCEROPHOSPHATE\PHOSPHORIC ACID\SODIUM PHOSPHATE, DIBASIC
     Dosage: 75 DROP, 1X/DAY
     Route: 048
     Dates: start: 20200711
  7. EUPANTOL [Suspect]
     Active Substance: PANTOPRAZOLE SODIUM
     Dosage: 20 MG, 1X/DAY
     Route: 048
     Dates: start: 20200711, end: 20200722
  8. METRONIDAZOLE B BRAUN [Suspect]
     Active Substance: METRONIDAZOLE
     Indication: SEPTIC SHOCK
     Dosage: 1500 MG, 1X/DAY
     Route: 042
     Dates: start: 20200704
  9. PANTOPRAZOLE SODIUM. [Suspect]
     Active Substance: PANTOPRAZOLE SODIUM
     Dosage: 40 MG, 1X/DAY
     Route: 042
     Dates: start: 20200630, end: 20200710
  10. HYDROSOL POLYVITAMINE [Concomitant]
     Active Substance: VITAMINS
     Dosage: 25 DROP, 1X/DAY
     Route: 048
     Dates: start: 20200711
  11. KARDEGIC [Concomitant]
     Active Substance: ASPIRIN DL-LYSINE
     Dosage: 75 MG, 1X/DAY
     Route: 048
     Dates: start: 20200711

REACTIONS (1)
  - Neutropenia [Not Recovered/Not Resolved]

NARRATIVE: CASE EVENT DATE: 20200714
